FAERS Safety Report 7133717-9 (Version None)
Quarter: 2010Q4

REPORT INFORMATION
  Report Type: 
  Country: None (occurrence: None)
  Receive Date: 20101203
  Receipt Date: 20101119
  Transmission Date: 20110411
  Serious: Yes (Other)
  Sender: FDA-Public Use
  Company Number: US-BIOGENIDEC-2010BI019477

PATIENT
  Age: 44 Year
  Sex: Male
  Weight: 75 kg

DRUGS (3)
  1. TYSABRI [Suspect]
     Indication: MULTIPLE SCLEROSIS
     Route: 042
     Dates: start: 20071130
  2. ATENOLOL [Concomitant]
  3. MIRTAZAPINE [Concomitant]

REACTIONS (5)
  - CONVULSION [None]
  - CYSTITIS [None]
  - FALL [None]
  - LYMPH NODE PAIN [None]
  - MUSCULAR WEAKNESS [None]
